FAERS Safety Report 16809111 (Version 3)
Quarter: 2020Q4

REPORT INFORMATION
  Report Type: Report from Study
  Country: US (occurrence: US)
  Receive Date: 20190916
  Receipt Date: 20201021
  Transmission Date: 20210113
  Serious: No
  Sender: FDA-Public Use
  Company Number: PHEH2019US038023

PATIENT
  Sex: Female

DRUGS (2)
  1. GILENYA [Suspect]
     Active Substance: FINGOLIMOD HYDROCHLORIDE
     Dosage: 0.5 MG, QD
     Route: 048
     Dates: start: 20190206
  2. GILENYA [Suspect]
     Active Substance: FINGOLIMOD HYDROCHLORIDE
     Indication: MULTIPLE SCLEROSIS
     Dosage: 0.5 MG, QD
     Route: 048
     Dates: start: 20190606

REACTIONS (3)
  - Central nervous system lesion [Unknown]
  - Paraesthesia [Recovering/Resolving]
  - Headache [Unknown]
